FAERS Safety Report 10072500 (Version 1)
Quarter: 2014Q2

REPORT INFORMATION
  Report Type: Spontaneous
  Country: US (occurrence: None)
  Receive Date: 20140410
  Receipt Date: 20140410
  Transmission Date: 20141212
  Serious: Yes (Other)
  Sender: FDA-Public Use
  Company Number: None

PATIENT
  Sex: Male
  Weight: 88.91 kg

DRUGS (1)
  1. COBROXIN ORAL SPRAY [Suspect]
     Dosage: ORAL SPRAY 1OZ
     Dates: start: 20111108, end: 20111220

REACTIONS (18)
  - Constipation [None]
  - Heart rate irregular [None]
  - Renal disorder [None]
  - Liver injury [None]
  - Paralysis [None]
  - Swelling [None]
  - Skin swelling [None]
  - Paraesthesia [None]
  - Cardiac disorder [None]
  - Chest pain [None]
  - Blood pressure abnormal [None]
  - Syncope [None]
  - Weight increased [None]
  - Vertigo [None]
  - Fungal skin infection [None]
  - Systemic lupus erythematosus [None]
  - Rash [None]
  - Disturbance in attention [None]
